FAERS Safety Report 25653045 (Version 1)
Quarter: 2025Q3

REPORT INFORMATION
  Report Type: Spontaneous
  Country: US (occurrence: US)
  Receive Date: 20250807
  Receipt Date: 20250807
  Transmission Date: 20251021
  Serious: Yes (Hospitalization)
  Sender: CHEPLAPHARM
  Company Number: US-CHEPLA-2025009328

PATIENT
  Weight: 2.41 kg

DRUGS (4)
  1. HYDROXYUREA [Suspect]
     Active Substance: HYDROXYUREA
     Route: 064
  2. BETAMETHASONE [Suspect]
     Active Substance: BETAMETHASONE
     Route: 064
  3. PREDNISONE [Suspect]
     Active Substance: PREDNISONE
     Indication: Maternal therapy to enhance foetal lung maturity
     Route: 064
  4. ECULIZUMAB [Suspect]
     Active Substance: ECULIZUMAB
     Indication: Maternal therapy to enhance foetal lung maturity
     Route: 064

REACTIONS (4)
  - Premature baby [Unknown]
  - Respiratory distress [Unknown]
  - Pulmonary oedema [Unknown]
  - Foetal exposure during pregnancy [Recovered/Resolved]
